FAERS Safety Report 25491745 (Version 2)
Quarter: 2025Q3

REPORT INFORMATION
  Report Type: Spontaneous
  Country: JP (occurrence: JP)
  Receive Date: 20250630
  Receipt Date: 20250721
  Transmission Date: 20251021
  Serious: Yes (Other)
  Sender: JOHNSON AND JOHNSON
  Company Number: JP-JNJFOC-20250634567

PATIENT
  Age: 81 Year
  Sex: Female
  Weight: 33.3 kg

DRUGS (41)
  1. PALIPERIDONE PALMITATE [Suspect]
     Active Substance: PALIPERIDONE PALMITATE
     Indication: Schizophrenia
     Route: 030
  2. PALIPERIDONE PALMITATE [Suspect]
     Active Substance: PALIPERIDONE PALMITATE
  3. PALIPERIDONE PALMITATE [Suspect]
     Active Substance: PALIPERIDONE PALMITATE
  4. RISPERDAL [Concomitant]
     Active Substance: RISPERIDONE
     Indication: Schizophrenia
     Route: 048
     Dates: start: 20120608, end: 20120703
  5. RISPERDAL CONSTA [Concomitant]
     Active Substance: RISPERIDONE
     Indication: Schizophrenia
     Dosage: 2 TIMES
     Route: 030
     Dates: start: 20120608, end: 20120622
  6. RISPERDAL CONSTA [Concomitant]
     Active Substance: RISPERIDONE
     Route: 030
     Dates: start: 20120706, end: 20120803
  7. RISPERDAL CONSTA [Concomitant]
     Active Substance: RISPERIDONE
     Route: 030
     Dates: start: 20130116, end: 20130628
  8. RISPERDAL CONSTA [Concomitant]
     Active Substance: RISPERIDONE
     Dosage: 3 TIMES
     Route: 030
     Dates: start: 20170605, end: 20170703
  9. RISPERDAL CONSTA [Concomitant]
     Active Substance: RISPERIDONE
     Route: 030
     Dates: start: 20170717, end: 20190226
  10. HALOMONTH [Concomitant]
     Active Substance: HALOPERIDOL DECANOATE
     Indication: Schizophrenia
     Route: 030
     Dates: start: 20130904, end: 20160701
  11. HALOMONTH [Concomitant]
     Active Substance: HALOPERIDOL DECANOATE
     Dosage: ONCE
     Route: 030
     Dates: start: 20170313, end: 20170313
  12. HALOMONTH [Concomitant]
     Active Substance: HALOPERIDOL DECANOATE
     Route: 030
     Dates: start: 20191009, end: 20191106
  13. PALIPERIDONE PALMITATE [Concomitant]
     Active Substance: PALIPERIDONE PALMITATE
     Indication: Schizophrenia
     Route: 030
     Dates: start: 20160801, end: 20160801
  14. PALIPERIDONE PALMITATE [Concomitant]
     Active Substance: PALIPERIDONE PALMITATE
     Route: 030
     Dates: start: 20160829, end: 20160926
  15. PALIPERIDONE PALMITATE [Concomitant]
     Active Substance: PALIPERIDONE PALMITATE
     Route: 030
     Dates: start: 20161014, end: 20170218
  16. PALIPERIDONE PALMITATE [Concomitant]
     Active Substance: PALIPERIDONE PALMITATE
     Dosage: 2 TIMES
     Route: 030
     Dates: start: 20170410, end: 20170508
  17. PALIPERIDONE PALMITATE [Concomitant]
     Active Substance: PALIPERIDONE PALMITATE
     Route: 030
     Dates: start: 20191204, end: 20191204
  18. PALIPERIDONE PALMITATE [Concomitant]
     Active Substance: PALIPERIDONE PALMITATE
     Route: 030
     Dates: start: 20191211, end: 20191211
  19. PALIPERIDONE PALMITATE [Concomitant]
     Active Substance: PALIPERIDONE PALMITATE
     Dosage: 2 TIMES
     Route: 030
     Dates: start: 20200108, end: 20200205
  20. PALIPERIDONE PALMITATE [Concomitant]
     Active Substance: PALIPERIDONE PALMITATE
     Dosage: 3 TIMES
     Route: 030
     Dates: start: 20200304, end: 20200427
  21. PALIPERIDONE PALMITATE [Concomitant]
     Active Substance: PALIPERIDONE PALMITATE
     Dosage: 3 TIMES
     Route: 030
     Dates: start: 20200525, end: 20200720
  22. PALIPERIDONE PALMITATE [Concomitant]
     Active Substance: PALIPERIDONE PALMITATE
     Dosage: 6 TIMES
     Route: 030
     Dates: start: 20200817, end: 20210104
  23. INVEGA [Concomitant]
     Active Substance: PALIPERIDONE
     Indication: Schizophrenia
     Route: 048
     Dates: start: 20191129, end: 20191203
  24. RISPERIDONE [Concomitant]
     Active Substance: RISPERIDONE
     Indication: Schizophrenia
     Route: 048
     Dates: start: 20130731, end: 20130902
  25. RISPERIDONE [Concomitant]
     Active Substance: RISPERIDONE
     Route: 048
     Dates: start: 20130903, end: 20131110
  26. ABILIFY [Concomitant]
     Active Substance: ARIPIPRAZOLE
     Indication: Schizophrenia
     Route: 048
     Dates: start: 20120530, end: 20120605
  27. SEROQUEL [Concomitant]
     Active Substance: QUETIAPINE FUMARATE
     Indication: Schizophrenia
     Route: 048
     Dates: start: 20120618, end: 20120724
  28. ZYPREXA [Concomitant]
     Active Substance: OLANZAPINE
     Indication: Schizophrenia
     Route: 048
     Dates: start: 20130726, end: 20130730
  29. ZYPREXA [Concomitant]
     Active Substance: OLANZAPINE
     Indication: Schizophrenia
     Route: 030
     Dates: start: 20191120, end: 20191122
  30. ZYPREXA [Concomitant]
     Active Substance: OLANZAPINE
     Route: 030
     Dates: start: 20191126, end: 20191128
  31. REXULTI [Concomitant]
     Active Substance: BREXPIPRAZOLE
     Indication: Schizophrenia
     Route: 048
     Dates: start: 20190311, end: 20190331
  32. REXULTI [Concomitant]
     Active Substance: BREXPIPRAZOLE
     Route: 048
     Dates: start: 20190401, end: 20190408
  33. OLANZAPINE [Concomitant]
     Active Substance: OLANZAPINE
     Indication: Schizophrenia
     Route: 048
     Dates: start: 20190409, end: 20190428
  34. OLANZAPINE [Concomitant]
     Active Substance: OLANZAPINE
     Route: 048
     Dates: start: 20190513, end: 20191003
  35. OLANZAPINE [Concomitant]
     Active Substance: OLANZAPINE
     Indication: Schizophrenia
     Route: 048
     Dates: start: 20190429, end: 20190512
  36. ZYPREXA [Concomitant]
     Active Substance: OLANZAPINE
     Indication: Schizophrenia
     Route: 048
     Dates: start: 20191004, end: 20191008
  37. ABILIFY [Concomitant]
     Active Substance: ARIPIPRAZOLE
     Indication: Schizophrenia
     Route: 048
     Dates: start: 20160608, end: 20160627
  38. ABILIFY [Concomitant]
     Active Substance: ARIPIPRAZOLE
     Route: 048
     Dates: start: 20250626, end: 20250630
  39. ABILIFY [Concomitant]
     Active Substance: ARIPIPRAZOLE
     Route: 048
     Dates: start: 20250701, end: 20250709
  40. ABILIFY [Concomitant]
     Active Substance: ARIPIPRAZOLE
     Route: 048
     Dates: start: 20250710
  41. ABILIFY [Concomitant]
     Active Substance: ARIPIPRAZOLE
     Indication: Schizophrenia
     Route: 065
     Dates: start: 20250710

REACTIONS (2)
  - Renal impairment [Not Recovered/Not Resolved]
  - Weight decreased [Unknown]

NARRATIVE: CASE EVENT DATE: 20250606
